FAERS Safety Report 9016200 (Version 2)
Quarter: 2013Q1

REPORT INFORMATION
  Report Type: Spontaneous
  Country: NL (occurrence: NL)
  Receive Date: 20130116
  Receipt Date: 20130228
  Transmission Date: 20140127
  Serious: Yes (Hospitalization)
  Sender: FDA-Public Use
  Company Number: NL-B.I. PHARMACEUTICALS,INC./RIDGEFIELD-2013-NL-00012NL

PATIENT
  Sex: Male
  Weight: 100 kg

DRUGS (6)
  1. PRADAXA [Suspect]
     Indication: ATRIAL FIBRILLATION
     Dosage: 300 MG
     Dates: start: 20120510
  2. OMNIC OCAS [Suspect]
     Dosage: 0.4 MG
  3. SELOKEEN ZOC [Concomitant]
     Dosage: 200 MG
  4. SIMVASTATINE [Concomitant]
     Dosage: 40 MG
  5. CLOPIDOGREL [Concomitant]
     Dosage: 75 MG
  6. NORTRICINE [Concomitant]
     Dosage: 10 MG

REACTIONS (2)
  - Surgery [Unknown]
  - Headache [Recovered/Resolved with Sequelae]
